FAERS Safety Report 7965618-8 (Version None)
Quarter: 2011Q4

REPORT INFORMATION
  Report Type: 
  Country: None (occurrence: None)
  Receive Date: 20111208
  Receipt Date: 20111202
  Transmission Date: 20120403
  Serious: Yes (Hospitalization, Other)
  Sender: FDA-Public Use
  Company Number: DE-ABBOTT-11P-062-0865224-00

PATIENT
  Sex: Male
  Weight: 86 kg

DRUGS (5)
  1. NSAR/COXIBE [Concomitant]
     Indication: PRODUCT USED FOR UNKNOWN INDICATION
  2. PREDNISOLONE [Concomitant]
     Indication: PRODUCT USED FOR UNKNOWN INDICATION
  3. METHOTREXATE [Concomitant]
     Indication: PRODUCT USED FOR UNKNOWN INDICATION
  4. HUMIRA [Suspect]
     Indication: RHEUMATOID ARTHRITIS
     Route: 058
     Dates: start: 20060101
  5. LEFLUNOMIDE [Concomitant]
     Indication: PRODUCT USED FOR UNKNOWN INDICATION

REACTIONS (22)
  - JAUNDICE [None]
  - HYPOCHROMASIA [None]
  - MICROCYTIC ANAEMIA [None]
  - URINARY TRACT INFECTION BACTERIAL [None]
  - OESOPHAGEAL CANDIDIASIS [None]
  - ALCOHOLIC LIVER DISEASE [None]
  - GENERAL PHYSICAL HEALTH DETERIORATION [None]
  - HEPATIC CIRRHOSIS [None]
  - ORAL CANDIDIASIS [None]
  - HEPATORENAL SYNDROME [None]
  - ALCOHOLIC SEIZURE [None]
  - HYPOKALAEMIA [None]
  - HEPATIC FAILURE [None]
  - HEPATITIS ALCOHOLIC [None]
  - ESCHERICHIA SEPSIS [None]
  - LIVER FUNCTION TEST ABNORMAL [None]
  - DECREASED APPETITE [None]
  - ALCOHOL ABUSE [None]
  - DEVICE RELATED SEPSIS [None]
  - CONVULSION [None]
  - ASTHENIA [None]
  - DIARRHOEA [None]
